FAERS Safety Report 16903467 (Version 1)
Quarter: 2019Q4

REPORT INFORMATION
  Report Type: Report from Study
  Country: AT (occurrence: AT)
  Receive Date: 20191010
  Receipt Date: 20191010
  Transmission Date: 20200122
  Serious: Yes (Hospitalization)
  Sender: FDA-Public Use
  Company Number: AT-KARYOPHARM-2018KPT000445

PATIENT
  Age: 82 Year
  Sex: Female
  Weight: 62 kg

DRUGS (16)
  1. FORTECORTIN CAMPUS [Concomitant]
     Indication: ADVERSE EVENT
     Dosage: 4 MG, QD
     Route: 042
     Dates: start: 20180730, end: 20180730
  2. MULTIVIT [Concomitant]
     Active Substance: VITAMINS
     Dosage: 1500 ML, QD
     Route: 042
     Dates: start: 20180803, end: 20180803
  3. NOVALGIN [Concomitant]
     Dosage: 1 AMPOULE, QD
     Route: 042
     Dates: start: 20180803, end: 20180803
  4. ONDANSETRON [Concomitant]
     Active Substance: ONDANSETRON
     Indication: ADVERSE EVENT
     Dosage: 1 AMPOULE, QD
     Route: 042
     Dates: start: 20180730, end: 20180730
  5. ONDANSETRON [Concomitant]
     Active Substance: ONDANSETRON
     Dosage: 1 AMPOULE, QD
     Route: 042
     Dates: start: 20180808, end: 20180808
  6. NEBIVOLOL. [Concomitant]
     Active Substance: NEBIVOLOL
     Indication: PRODUCT USED FOR UNKNOWN INDICATION
     Dosage: 5 MG, QD
     Route: 048
     Dates: start: 2018
  7. FORTECORTIN CAMPUS [Concomitant]
     Dosage: 4 MG, QD
     Route: 042
     Dates: start: 20180806, end: 20180806
  8. MULTIVIT [Concomitant]
     Active Substance: VITAMINS
     Indication: ADVERSE EVENT
     Dosage: 1500 ML, QD
     Route: 042
     Dates: start: 20180730, end: 20180730
  9. MULTIVIT [Concomitant]
     Active Substance: VITAMINS
     Dosage: 1500 ML,QD
     Route: 042
     Dates: start: 20180808, end: 20180808
  10. SELINEXOR [Suspect]
     Active Substance: SELINEXOR
     Indication: DIFFUSE LARGE B-CELL LYMPHOMA
     Dosage: 60 MG, 2X/WEEK
     Route: 048
     Dates: start: 20180702
  11. NOVALGIN [Concomitant]
     Indication: ADVERSE EVENT
     Dosage: 1 G, QD
     Route: 042
     Dates: start: 20180730, end: 20180730
  12. FORTECORTIN CAMPUS [Concomitant]
     Dosage: 4 MG, QD
     Route: 042
     Dates: start: 20180803, end: 20180803
  13. MULTIVIT [Concomitant]
     Active Substance: VITAMINS
     Dosage: 1500 ML, QD
     Route: 042
     Dates: start: 20180806, end: 20180806
  14. ONDANSETRON [Concomitant]
     Active Substance: ONDANSETRON
     Dosage: 1 AMPOULE, QD
     Route: 042
     Dates: start: 20180803, end: 20180803
  15. ONDANSETRON [Concomitant]
     Active Substance: ONDANSETRON
     Dosage: 1 AMPOULE, QD
     Route: 042
     Dates: start: 20180806, end: 20180806
  16. FORTECORTIN CAMPUS [Concomitant]
     Dosage: 4 MG, QD
     Route: 042
     Dates: start: 20180808, end: 20180808

REACTIONS (1)
  - Fatigue [Not Recovered/Not Resolved]

NARRATIVE: CASE EVENT DATE: 20180817
